FAERS Safety Report 4809546-5 (Version None)
Quarter: 2005Q4

REPORT INFORMATION
  Report Type: 
  Country: None (occurrence: None)
  Receive Date: 20051021
  Receipt Date: 20030213
  Transmission Date: 20060501
  Serious: No
  Sender: FDA-Public Use
  Company Number: US_030292766

PATIENT
  Age: 50 Year
  Sex: Male
  Weight: 90 kg

DRUGS (3)
  1. ZYPREXA [Suspect]
     Indication: ANXIETY
     Dosage: 5 MG/DAY
     Dates: start: 20000324
  2. ZYPREXA [Suspect]
     Indication: DELUSIONAL DISORDER, PERSECUTORY TYPE
     Dosage: 5 MG/DAY
     Dates: start: 20000324
  3. ZYPREXA [Suspect]
     Indication: DEPRESSION
     Dosage: 5 MG/DAY
     Dates: start: 20000324

REACTIONS (1)
  - HAEMATOSPERMIA [None]
